FAERS Safety Report 14650535 (Version 3)
Quarter: 2019Q2

REPORT INFORMATION
  Report Type: Spontaneous
  Country: US (occurrence: US)
  Receive Date: 20180316
  Receipt Date: 20190514
  Transmission Date: 20190711
  Serious: No
  Sender: FDA-Public Use
  Company Number: US-CELLTRION INC.-2017US017235

PATIENT

DRUGS (3)
  1. INFLECTRA [Suspect]
     Active Substance: INFLIXIMAB-DYYB
     Indication: COLITIS ULCERATIVE
     Dosage: 5 MG PER KG, TOTAL OF 3 VIALS WHICH IS 300 MG, EVERY 8 WEEKS)
     Route: 042
     Dates: start: 20171031, end: 20171031
  2. INFLECTRA [Suspect]
     Active Substance: INFLIXIMAB-DYYB
     Indication: CROHN^S DISEASE
     Dosage: 3 VIALS AT 0, 2, 6 AND THEN EVERY 8 WEEKS
     Route: 042
     Dates: start: 20171211, end: 20171211
  3. SULFASALAZINE. [Concomitant]
     Active Substance: SULFASALAZINE
     Indication: CROHN^S DISEASE
     Route: 048

REACTIONS (3)
  - Drug hypersensitivity [Unknown]
  - Product prescribing error [Unknown]
  - Drug specific antibody present [Unknown]
